FAERS Safety Report 20436798 (Version 1)
Quarter: 2022Q1

REPORT INFORMATION
  Report Type: Spontaneous
  Country: US (occurrence: US)
  Receive Date: 20220207
  Receipt Date: 20220207
  Transmission Date: 20220423
  Serious: Yes (Hospitalization, Other)
  Sender: FDA-Public Use
  Company Number: US-AMGEN-USASP2022018331

PATIENT
  Age: 79 Year
  Sex: Female

DRUGS (4)
  1. CARFILZOMIB [Suspect]
     Active Substance: CARFILZOMIB
     Indication: Amyloidosis
     Dosage: 70 MILLIGRAM/SQ. METER, ON DAYS 1, 8,
     Route: 042
     Dates: start: 202008
  2. CARFILZOMIB [Suspect]
     Active Substance: CARFILZOMIB
     Dosage: 56 MILLIGRAM/SQ. METER
     Route: 042
  3. DARATUMUMAB [Suspect]
     Active Substance: DARATUMUMAB
     Indication: Amyloidosis
     Dosage: 1800 MILLIGRAM, QWK
     Route: 058
  4. DEXAMETHASONE [Suspect]
     Active Substance: DEXAMETHASONE
     Indication: Amyloidosis
     Dosage: UNK
     Route: 065

REACTIONS (4)
  - Volvulus [Recovered/Resolved]
  - Thrombocytopenia [Unknown]
  - Fatigue [Unknown]
  - Off label use [Unknown]
